FAERS Safety Report 13125440 (Version 1)
Quarter: 2017Q1

REPORT INFORMATION
  Report Type: Spontaneous
  Country: US (occurrence: US)
  Receive Date: 20170117
  Receipt Date: 20170117
  Transmission Date: 20170428
  Serious: Yes (Hospitalization)
  Sender: FDA-Public Use
  Company Number: None

PATIENT
  Age: 31 Year
  Sex: Female

DRUGS (2)
  1. ONDANSETRON [Concomitant]
     Active Substance: ONDANSETRON
  2. EPCLUSA [Suspect]
     Active Substance: SOFOSBUVIR\VELPATASVIR
     Indication: HEPATITIS C
     Route: 048
     Dates: start: 20161122

REACTIONS (3)
  - Renal pain [None]
  - Nausea [None]
  - Malaise [None]

NARRATIVE: CASE EVENT DATE: 20170116
